FAERS Safety Report 9701196 (Version 1)
Quarter: 2013Q4

REPORT INFORMATION
  Report Type: Spontaneous
  Country: US (occurrence: US)
  Receive Date: 20131121
  Receipt Date: 20131121
  Transmission Date: 20140711
  Serious: Yes (Congenital Anomaly, Other)
  Sender: FDA-Public Use
  Company Number: US-PFIZER INC-2013328432

PATIENT
  Sex: Male
  Weight: 2.59 kg

DRUGS (1)
  1. SULFASALAZINE [Suspect]
     Indication: PROCTITIS
     Dosage: UNK, 4X/DAY
     Route: 064

REACTIONS (4)
  - Maternal exposure during pregnancy [Unknown]
  - Talipes [Unknown]
  - Choanal atresia [Unknown]
  - Brain malformation [Unknown]
